FAERS Safety Report 11874661 (Version 1)
Quarter: 2015Q4

REPORT INFORMATION
  Report Type: Spontaneous
  Country: US (occurrence: None)
  Receive Date: 20151228
  Receipt Date: 20151228
  Transmission Date: 20160305
  Serious: Yes (Death, Hospitalization)
  Sender: FDA-Public Use
  Company Number: None

PATIENT
  Age: 61 Year
  Sex: Male
  Weight: 110 kg

DRUGS (2)
  1. PRASUGREL 10 MG [Suspect]
     Active Substance: PRASUGREL
     Indication: THROMBOSIS PROPHYLAXIS
     Route: 048
     Dates: start: 20150201, end: 20151224
  2. EFFIENT [Concomitant]
     Active Substance: PRASUGREL HYDROCHLORIDE

REACTIONS (6)
  - Subarachnoid haemorrhage [None]
  - Brain midline shift [None]
  - Haemorrhagic stroke [None]
  - Vomiting [None]
  - Hemiparesis [None]
  - Acute respiratory failure [None]

NARRATIVE: CASE EVENT DATE: 20151224
